FAERS Safety Report 10997284 (Version 1)
Quarter: 2015Q2

REPORT INFORMATION
  Report Type: Spontaneous
  Country: US (occurrence: None)
  Receive Date: 20150407
  Receipt Date: 20150407
  Transmission Date: 20150821
  Serious: Yes (Hospitalization)
  Sender: FDA-Public Use
  Company Number: None

PATIENT
  Age: 26 Year
  Sex: Male
  Weight: 85.4 kg

DRUGS (1)
  1. DAUNORUBICIN [Suspect]
     Active Substance: DAUNORUBICIN
     Dates: end: 20150308

REACTIONS (6)
  - Hypoxia [None]
  - Toxicity to various agents [None]
  - Dyspnoea [None]
  - Tachypnoea [None]
  - Tachycardia [None]
  - Cardiomyopathy [None]

NARRATIVE: CASE EVENT DATE: 20150323
